FAERS Safety Report 5334646-3 (Version None)
Quarter: 2007Q2

REPORT INFORMATION
  Report Type: 
  Country: None (occurrence: None)
  Receive Date: 20070525
  Receipt Date: 20070523
  Transmission Date: 20071010
  Serious: Yes (Other)
  Sender: FDA-Public Use
  Company Number: B0466561A

PATIENT
  Age: 25 Year
  Sex: Female

DRUGS (5)
  1. MALARONE [Suspect]
     Indication: MALARIA PROPHYLAXIS
     Route: 048
     Dates: start: 20070221, end: 20070223
  2. CONTRACEPTIVE PILL [Concomitant]
     Route: 048
     Dates: start: 20060101
  3. HIPREX [Concomitant]
     Indication: DRUG USE FOR UNKNOWN INDICATION
     Route: 065
     Dates: start: 20060101
  4. MALARIA MEDICATION [Concomitant]
     Indication: PROPHYLAXIS
     Route: 065
  5. VITAMIN B-12 [Concomitant]
     Route: 065

REACTIONS (6)
  - AMNESIA [None]
  - CONFUSIONAL STATE [None]
  - EPILEPSY [None]
  - GRAND MAL CONVULSION [None]
  - POOR QUALITY SLEEP [None]
  - TONGUE INJURY [None]
